FAERS Safety Report 19388947 (Version 1)
Quarter: 2021Q2

REPORT INFORMATION
  Report Type: Spontaneous
  Country: JP (occurrence: JP)
  Receive Date: 20210608
  Receipt Date: 20210608
  Transmission Date: 20210717
  Serious: Yes (Other)
  Sender: FDA-Public Use
  Company Number: JP-ELI_LILLY_AND_COMPANY-JP202106001080

PATIENT
  Age: 65 Year
  Sex: Male

DRUGS (3)
  1. NECITUMUMAB [Suspect]
     Active Substance: NECITUMUMAB
     Indication: LUNG CARCINOMA CELL TYPE UNSPECIFIED STAGE III
     Dosage: 800 MG
     Route: 041
     Dates: start: 20210420
  2. CISPLATIN. [Suspect]
     Active Substance: CISPLATIN
     Indication: LUNG CARCINOMA CELL TYPE UNSPECIFIED STAGE III
     Dosage: UNK
     Route: 065
     Dates: start: 20210420
  3. GEMCITABINE. [Concomitant]
     Active Substance: GEMCITABINE
     Indication: LUNG CARCINOMA CELL TYPE UNSPECIFIED STAGE III
     Dosage: UNK
     Dates: start: 20210420

REACTIONS (2)
  - Platelet count decreased [Recovered/Resolved]
  - Rash [Not Recovered/Not Resolved]

NARRATIVE: CASE EVENT DATE: 20210420
